FAERS Safety Report 8319898 (Version 2)
Quarter: 2012Q4

REPORT INFORMATION
  Report Type: 
  Country: JP (occurrence: JP)
  Receive Date: 20120103
  Receipt Date: 20120913
  Transmission Date: 20130627
  Serious: Yes (Other)
  Sender: FDA-Public Use
  Company Number: JP-ROCHE-1025445

PATIENT
  Age: 67 Year
  Sex: Female
  Weight: 31 kg

DRUGS (6)
  1. AVASTIN [Suspect]
     Indication: LARGE INTESTINE CARCINOMA
     Route: 041
     Dates: start: 201108, end: 201110
  2. ELPLAT [Concomitant]
     Indication: LARGE INTESTINE CARCINOMA
     Dosage: Dosage is uncertain.
     Route: 041
     Dates: start: 201108, end: 201110
  3. DECADRON [Concomitant]
     Dosage: dosage is uncertain
     Route: 065
  4. LEVOFOLINATE [Concomitant]
     Indication: LARGE INTESTINE CARCINOMA
     Dosage: dosage is uncertain
     Route: 041
     Dates: start: 201108, end: 201110
  5. FLUOROURACIL [Concomitant]
     Indication: LARGE INTESTINE CARCINOMA
     Dosage: dosage is uncertain
     Route: 041
     Dates: start: 201108, end: 201110
  6. FLUOROURACIL [Concomitant]
     Route: 040
     Dates: start: 201108, end: 201110

REACTIONS (2)
  - Compression fracture [Unknown]
  - Compression fracture [Unknown]
